FAERS Safety Report 7141691-4 (Version None)
Quarter: 2010Q4

REPORT INFORMATION
  Report Type: 
  Country: None (occurrence: None)
  Receive Date: 20101124
  Receipt Date: 20101108
  Transmission Date: 20110411
  Serious: Yes (Hospitalization)
  Sender: FDA-Public Use
  Company Number: DSA_44357_2010

PATIENT
  Age: 90 Year
  Sex: Male

DRUGS (9)
  1. ENALAPRIL MALEATE [Suspect]
     Indication: PRODUCT USED FOR UNKNOWN INDICATION
     Dosage: (5 MG QD ORAL)
     Route: 048
  2. FUROSEMIDE [Suspect]
     Indication: PRODUCT USED FOR UNKNOWN INDICATION
     Dosage: (120 MG QD ORAL)
     Route: 048
  3. METOPROLOL (METOPROLOL ) 100 MG [Suspect]
     Indication: PRODUCT USED FOR UNKNOWN INDICATION
     Dosage: (100 MG QD ORAL)
     Route: 048
     Dates: end: 20100601
  4. FOSRENOL [Suspect]
     Indication: PRODUCT USED FOR UNKNOWN INDICATION
     Dosage: (750 MG QD OTHER)
     Route: 050
     Dates: start: 20100611, end: 20100614
  5. SIMVASTATIN [Concomitant]
  6. ZYLORIC [Concomitant]
  7. SUSCARD [Concomitant]
  8. TROMBYL [Concomitant]
  9. PREDNISOLONE [Concomitant]

REACTIONS (3)
  - BLOOD CREATININE INCREASED [None]
  - BODY TEMPERATURE INCREASED [None]
  - BRADYCARDIA [None]
